FAERS Safety Report 7351050-7 (Version None)
Quarter: 2011Q1

REPORT INFORMATION
  Report Type: 
  Country: None (occurrence: None)
  Receive Date: 20110314
  Receipt Date: 20110304
  Transmission Date: 20110831
  Serious: Yes (Hospitalization)
  Sender: FDA-Public Use
  Company Number: US-ASTRAZENECA-2011SE12104

PATIENT
  Sex: Female

DRUGS (1)
  1. NEXIUM [Suspect]
     Indication: GASTRIC BYPASS
     Route: 048
     Dates: start: 20010101

REACTIONS (2)
  - GASTRIC BYPASS [None]
  - DRUG DOSE OMISSION [None]
